FAERS Safety Report 8552184-1 (Version None)
Quarter: 2012Q3

REPORT INFORMATION
  Report Type: 
  Country: None (occurrence: None)
  Receive Date: 20120731
  Receipt Date: 20120719
  Transmission Date: 20120928
  Serious: No
  Sender: FDA-Public Use
  Company Number: US-BIOGENIDEC-2012BI026438

PATIENT
  Sex: Female

DRUGS (2)
  1. AVONEX [Suspect]
     Indication: MULTIPLE SCLEROSIS
     Route: 030
     Dates: start: 20051215
  2. AVONEX [Suspect]
     Route: 030
     Dates: start: 20110902

REACTIONS (2)
  - DYSPHONIA [None]
  - MULTIPLE SCLEROSIS RELAPSE [None]
